FAERS Safety Report 5194465-8 (Version None)
Quarter: 2006Q4

REPORT INFORMATION
  Report Type: 
  Country: None (occurrence: None)
  Receive Date: 20061221
  Receipt Date: 20061212
  Transmission Date: 20070319
  Serious: Yes (Other)
  Sender: FDA-Public Use
  Company Number: HQWYE964213DEC06

PATIENT
  Sex: 0

DRUGS (1)
  1. EFFEXOR [Suspect]
     Dates: end: 20051001

REACTIONS (3)
  - DRUG WITHDRAWAL SYNDROME [None]
  - NONSPECIFIC REACTION [None]
  - SUICIDAL IDEATION [None]
